FAERS Safety Report 13184671 (Version 2)
Quarter: 2017Q1

REPORT INFORMATION
  Report Type: Spontaneous
  Country: JP (occurrence: JP)
  Receive Date: 20170203
  Receipt Date: 20170210
  Transmission Date: 20170428
  Serious: Yes (Hospitalization)
  Sender: FDA-Public Use
  Company Number: JP-ASTRAZENECA-2017SE11583

PATIENT
  Age: 73 Year
  Sex: Male

DRUGS (3)
  1. CRESTOR [Suspect]
     Active Substance: ROSUVASTATIN CALCIUM
     Indication: DYSLIPIDAEMIA
     Route: 048
  2. CRESTOR [Suspect]
     Active Substance: ROSUVASTATIN CALCIUM
     Indication: DYSLIPIDAEMIA
     Route: 048
     Dates: start: 20160527, end: 201609
  3. LYRICA [Suspect]
     Active Substance: PREGABALIN
     Indication: MYALGIA
     Dosage: 75 MILLIGRAMS, NUMBER OF SEPARATE DOSAGES UNKNOWN
     Route: 048
     Dates: start: 201612

REACTIONS (6)
  - Pain in extremity [Recovering/Resolving]
  - Fall [Unknown]
  - Paraesthesia [Recovering/Resolving]
  - Musculoskeletal pain [Recovering/Resolving]
  - Dizziness [Recovering/Resolving]
  - Loss of consciousness [Recovering/Resolving]

NARRATIVE: CASE EVENT DATE: 201609
